FAERS Safety Report 15574455 (Version 1)
Quarter: 2018Q4

REPORT INFORMATION
  Report Type: Spontaneous
  Country: ZA (occurrence: ZA)
  Receive Date: 20181101
  Receipt Date: 20181101
  Transmission Date: 20190205
  Serious: Yes (Other)
  Sender: FDA-Public Use
  Company Number: ZA-TEVA-2018-ZA-970901

PATIENT

DRUGS (1)
  1. FILGRASTIM TEVA [Suspect]
     Active Substance: FILGRASTIM

REACTIONS (2)
  - Seizure [Unknown]
  - Product substitution issue [Unknown]
